FAERS Safety Report 4713316-6 (Version None)
Quarter: 2005Q3

REPORT INFORMATION
  Report Type: 
  Country: None (occurrence: None)
  Receive Date: 20050713
  Receipt Date: 20041203
  Transmission Date: 20060218
  Serious: Yes (Other)
  Sender: FDA-Public Use
  Company Number: GB-GLAXOSMITHKLINE-B0359527A

PATIENT
  Sex: Female

DRUGS (11)
  1. PAROXETINE HYDROCHLORIDE [Suspect]
     Indication: DEPRESSION
     Route: 065
     Dates: start: 19980304
  2. CANNABIS [Concomitant]
  3. ALCOHOL [Concomitant]
  4. ZIMOVANE [Concomitant]
  5. VALPROATE SODIUM [Concomitant]
  6. FLUANXOL [Concomitant]
  7. LITHIUM [Concomitant]
  8. LORAZEPAM [Concomitant]
  9. VENLAFAXINE HCL [Concomitant]
  10. MELLARIL [Concomitant]
     Indication: ANXIETY
  11. DOTHIEPIN HYDROCHLORIDE [Concomitant]
     Indication: DEPRESSION
     Dosage: 125MG PER DAY

REACTIONS (10)
  - ANXIETY [None]
  - DEPRESSED MOOD [None]
  - ILL-DEFINED DISORDER [None]
  - INTENTIONAL SELF-INJURY [None]
  - MENTAL IMPAIRMENT [None]
  - OVERDOSE [None]
  - SELF-INJURIOUS IDEATION [None]
  - SLEEP DISORDER [None]
  - SUICIDAL IDEATION [None]
  - TEARFULNESS [None]
